FAERS Safety Report 15104607 (Version 1)
Quarter: 2018Q3

REPORT INFORMATION
  Report Type: Report from Study
  Country: AT (occurrence: AT)
  Receive Date: 20180703
  Receipt Date: 20180703
  Transmission Date: 20181010
  Serious: Yes (Other)
  Sender: FDA-Public Use
  Company Number: AT-GILEAD-2018-0347917

PATIENT
  Age: 60 Year
  Sex: Female

DRUGS (5)
  1. SIMEPREVIR [Concomitant]
     Active Substance: SIMEPREVIR
  2. ENTECAVIR. [Concomitant]
     Active Substance: ENTECAVIR
  3. TENOFOVIR DISOPROXIL FUMARATE. [Suspect]
     Active Substance: TENOFOVIR DISOPROXIL FUMARATE
     Indication: HEPATITIS B
     Dosage: UNK
     Route: 065
  4. DACLATASVIR. [Concomitant]
     Active Substance: DACLATASVIR
  5. SOFOSBUVIR [Concomitant]
     Active Substance: SOFOSBUVIR

REACTIONS (1)
  - Hyperbilirubinaemia [Unknown]
